FAERS Safety Report 24540259 (Version 2)
Quarter: 2024Q4

REPORT INFORMATION
  Report Type: Spontaneous
  Country: JP (occurrence: JP)
  Receive Date: 20241023
  Receipt Date: 20241106
  Transmission Date: 20250114
  Serious: Yes (Other)
  Sender: CHEPLAPHARM
  Company Number: JP-CHEPLA-2024013279

PATIENT
  Age: 74 Year
  Sex: Male

DRUGS (1)
  1. VALGANCICLOVIR [Suspect]
     Active Substance: VALGANCICLOVIR
     Dosage: DRY SYRUP
     Route: 048

REACTIONS (1)
  - Pneumonia [Unknown]
